FAERS Safety Report 8615046-7 (Version None)
Quarter: 2012Q3

REPORT INFORMATION
  Report Type: 
  Country: None (occurrence: None)
  Receive Date: 20120823
  Receipt Date: 20120816
  Transmission Date: 20120928
  Serious: Yes (Hospitalization)
  Sender: FDA-Public Use
  Company Number: US-B.I. PHARMACEUTICALS,INC./RIDGEFIELD-2011-BP-08686BP

PATIENT
  Sex: Female

DRUGS (37)
  1. LEVOTHYROXINE SODIUM [Concomitant]
     Indication: THYROID DISORDER
     Dosage: 50 MCG
     Route: 048
  2. AGGRENOX [Concomitant]
  3. ZOFRAN [Concomitant]
  4. FLEXERIL [Concomitant]
  5. PRADAXA [Suspect]
     Indication: CEREBROVASCULAR ACCIDENT PROPHYLAXIS
  6. BENICAR [Concomitant]
     Indication: HYPERTENSION
     Route: 048
  7. NEXIUM [Concomitant]
     Indication: GASTROOESOPHAGEAL REFLUX DISEASE
     Dosage: 40 MG
     Route: 048
  8. LASIX [Concomitant]
     Indication: HYPERTENSION
  9. IRRITABLE BOWEL SYNDROME CAPSULE [Concomitant]
  10. RESTASIS [Concomitant]
  11. COMBIVENT [Concomitant]
     Route: 055
  12. PRADAXA [Suspect]
     Indication: PROTEIN S DEFICIENCY
     Dosage: 300 MG
     Route: 048
     Dates: start: 20110311
  13. PRADAXA [Suspect]
     Indication: TRANSIENT ISCHAEMIC ATTACK
  14. LEVOTHYROXINE SODIUM [Concomitant]
     Indication: HYPOTHYROIDISM
  15. LASIX [Concomitant]
     Indication: FLUID RETENTION
     Dosage: 40 MG
     Route: 048
  16. MUCINEX [Concomitant]
     Indication: NASAL CONGESTION
     Route: 048
  17. B12 SHOT [Concomitant]
     Indication: ENERGY INCREASED
     Route: 058
  18. LEVOTHYROXINE SODIUM [Concomitant]
     Indication: HYPOTHYROIDISM
     Dosage: 50 MG
     Route: 048
  19. ALPHAGAN [Concomitant]
     Indication: GLAUCOMA
  20. CACLIUM [Concomitant]
     Route: 048
  21. PRADAXA [Suspect]
     Indication: ATRIAL FIBRILLATION
  22. LUTEIN [Concomitant]
     Dosage: 5 MG
  23. POTASSIUM [Concomitant]
     Indication: ATRIAL FIBRILLATION
     Dosage: 20 MG
     Route: 048
  24. ZOLOFT [Concomitant]
     Indication: DEPRESSION
     Dosage: 50 MG
     Route: 048
  25. AMITRIPTYLINE HYDROCHLORIDE [Concomitant]
     Indication: MIGRAINE
     Dosage: 25 MG
     Route: 048
  26. MIACALCIN SPRAY [Concomitant]
     Indication: BONE DISORDER
     Route: 045
  27. SUMATRIPTAN SUCCINATE [Concomitant]
     Dosage: 100 MG
  28. NEURONTIN [Concomitant]
     Indication: LIMB INJURY
     Dosage: 300 MG
     Route: 048
  29. SIMVASTATIN [Concomitant]
     Indication: BLOOD CHOLESTEROL INCREASED
     Dosage: 20 MG
     Route: 048
  30. TYLENOL [Concomitant]
     Route: 048
  31. OSCAL CHEWABLE [Concomitant]
     Indication: BONE DISORDER
     Route: 048
  32. B12 SHOT [Concomitant]
     Indication: HYPOVITAMINOSIS
  33. FUROSEMIDE [Concomitant]
     Dosage: 40 MG
  34. HYDROCODONE BITARTRATE AND ACETAMINOPHEN [Concomitant]
  35. LOMOTIL [Concomitant]
  36. VOLTAREN [Concomitant]
  37. APAP/BUTALBITAL/CAFF [Concomitant]
     Indication: HEADACHE

REACTIONS (11)
  - MUSCULAR WEAKNESS [None]
  - CONFUSIONAL STATE [None]
  - FLUID RETENTION [None]
  - PARAESTHESIA [None]
  - VERTIGO [None]
  - ASTHENIA [None]
  - HYPOAESTHESIA ORAL [None]
  - HYPOAESTHESIA [None]
  - PARAESTHESIA ORAL [None]
  - CEREBROVASCULAR ACCIDENT [None]
  - TRANSIENT ISCHAEMIC ATTACK [None]
